FAERS Safety Report 7312711-9 (Version None)
Quarter: 2011Q1

REPORT INFORMATION
  Report Type: 
  Country: None (occurrence: None)
  Receive Date: 20110224
  Receipt Date: 20110214
  Transmission Date: 20110831
  Serious: Yes (Hospitalization)
  Sender: FDA-Public Use
  Company Number: US-BAYER-2011-014569

PATIENT
  Sex: Male
  Weight: 77 kg

DRUGS (6)
  1. CARVEDILOL [Concomitant]
  2. METFORMIN [Concomitant]
  3. CRESTOR [Concomitant]
  4. ASPIRIN [Suspect]
     Indication: ISCHAEMIC HEART DISEASE PROPHYLAXIS
     Dosage: 1 DF, QD
     Route: 048
     Dates: start: 19950101, end: 19970101
  5. VERAPAMIL [Suspect]
  6. LISINOPRIL [Concomitant]

REACTIONS (1)
  - GASTRIC ULCER [None]
